FAERS Safety Report 8360373-4 (Version None)
Quarter: 2012Q2

REPORT INFORMATION
  Report Type: 
  Country: None (occurrence: None)
  Receive Date: 20120515
  Receipt Date: 20120504
  Transmission Date: 20120825
  Serious: Yes (Hospitalization)
  Sender: FDA-Public Use
  Company Number: FR-JNJFOC-20120412772

PATIENT
  Age: 38 Year
  Sex: Male

DRUGS (1)
  1. KETOCONAZOLE [Suspect]
     Indication: TINEA VERSICOLOUR
     Route: 003
     Dates: start: 19990101

REACTIONS (1)
  - ECZEMA [None]
